FAERS Safety Report 4388471-0 (Version None)
Quarter: 2004Q2

REPORT INFORMATION
  Report Type: 
  Country: None (occurrence: None)
  Receive Date: 20040624
  Receipt Date: 20040611
  Transmission Date: 20050107
  Serious: Yes (Other)
  Sender: FDA-Public Use
  Company Number: 2004215800DE

PATIENT
  Age: 78 Year
  Sex: Male

DRUGS (2)
  1. BEXTRA [Suspect]
     Indication: PAIN
     Dosage: 1 DF QD; ORAL
     Route: 048
     Dates: start: 20040422, end: 20040514
  2. PILOCARPINE (PILOCARPINE) [Suspect]
     Indication: GLAUCOMA
     Dosage: 1 GTT, QID, OPHTHALMIC
     Route: 047
     Dates: start: 20040422

REACTIONS (3)
  - CONDITION AGGRAVATED [None]
  - DRUG INTERACTION [None]
  - GLAUCOMA [None]
